FAERS Safety Report 9530839 (Version 1)
Quarter: 2013Q3

REPORT INFORMATION
  Report Type: Spontaneous
  Country: US (occurrence: None)
  Receive Date: 20130916
  Receipt Date: 20130916
  Transmission Date: 20140515
  Serious: No
  Sender: FDA-Public Use
  Company Number: None

PATIENT
  Age: 53 Year
  Sex: Female
  Weight: 78 kg

DRUGS (4)
  1. FLUOROURACIL [Suspect]
     Dosage: 740 MG GIVEN IN CLINIC AND 4440 MG GIVEN AT HOME OVER DAY 1 AND DAY 2.
  2. BEVACIZUMAB [Suspect]
  3. LEUCOVORIN CALCIUM [Suspect]
  4. OXALIPLATIN [Suspect]

REACTIONS (1)
  - Neutrophil count decreased [None]
